FAERS Safety Report 8806494 (Version 1)
Quarter: 2012Q4

REPORT INFORMATION
  Report Type: 
  Country: FR (occurrence: FR)
  Receive Date: 20120925
  Receipt Date: 20120925
  Transmission Date: 20130627
  Serious: Yes (Hospitalization)
  Sender: FDA-Public Use
  Company Number: FR-009507513-1209FRA006003

PATIENT
  Age: 86 Year
  Sex: Female

DRUGS (6)
  1. SINEMET [Suspect]
     Indication: PARKINSON^S DISEASE
     Dosage: 500 mg, qd
     Route: 048
     Dates: end: 201206
  2. SINEMET [Suspect]
     Dosage: 500 mg, qd
     Route: 048
     Dates: start: 20120714, end: 20120813
  3. SINEMET [Suspect]
     Indication: PARKINSON^S DISEASE
     Dosage: 250 mg, tid
     Route: 048
     Dates: start: 201206, end: 20120714
  4. CANDESARTAN CILEXETIL\HYDROCHLOROTHIAZIDE [Concomitant]
  5. DIAMICRON [Concomitant]
  6. ACETAMINOPHEN\CAFFEINE\OPIUM [Concomitant]

REACTIONS (10)
  - Gait disturbance [Recovering/Resolving]
  - Confusional state [Recovering/Resolving]
  - Disorientation [Recovering/Resolving]
  - Dysarthria [Recovering/Resolving]
  - Dyskinesia [Recovered/Resolved]
  - Thrombocytopenia [None]
  - Haemorrhage [None]
  - Hyponatraemia [None]
  - Blood potassium decreased [None]
  - Blood chloride decreased [None]
